FAERS Safety Report 4797626-2 (Version None)
Quarter: 2005Q3

REPORT INFORMATION
  Report Type: 
  Country: None (occurrence: None)
  Receive Date: 20050929
  Receipt Date: 20050712
  Transmission Date: 20060218
  Serious: No
  Sender: FDA-Public Use
  Company Number: 05P-163-0305507-00

PATIENT
  Age: 44 Year
  Sex: Female
  Weight: 123 kg

DRUGS (7)
  1. HUMIRA [Suspect]
     Indication: PSORIATIC ARTHROPATHY
     Dosage: 40 MG, 1 IN 2 WK, SUBCUTANEOUS
     Route: 058
     Dates: start: 20050601
  2. SULFASALAZINE [Concomitant]
  3. METHOTREXATE [Concomitant]
  4. CELECOXIB [Concomitant]
  5. LISINOPRIL [Concomitant]
  6. BUDESONIDE [Concomitant]
  7. SALMETEROL XINAFOATE [Concomitant]

REACTIONS (2)
  - INJECTION SITE IRRITATION [None]
  - RASH PRURITIC [None]
